FAERS Safety Report 7717349-7 (Version None)
Quarter: 2011Q3

REPORT INFORMATION
  Report Type: 
  Country: None (occurrence: None)
  Receive Date: 20110830
  Receipt Date: 20110823
  Transmission Date: 20111222
  Serious: Yes (Hospitalization)
  Sender: FDA-Public Use
  Company Number: US-JNJFOC-20110502065

PATIENT
  Sex: Male
  Weight: 40.9 kg

DRUGS (6)
  1. HUMIRA [Concomitant]
     Dates: start: 20100409
  2. INFLIXIMAB, RECOMBINANT [Suspect]
     Indication: INFLAMMATORY BOWEL DISEASE
     Route: 042
     Dates: start: 20080619, end: 20100321
  3. AMITRIPTYLINE HCL [Concomitant]
  4. FOCALIN [Concomitant]
  5. HUMIRA [Concomitant]
     Dates: start: 20101017
  6. OMEPRAZOLE [Concomitant]

REACTIONS (1)
  - CLOSTRIDIAL INFECTION [None]
